FAERS Safety Report 8113915-8 (Version None)
Quarter: 2012Q1

REPORT INFORMATION
  Report Type: 
  Country: None (occurrence: None)
  Receive Date: 20120203
  Receipt Date: 20120119
  Transmission Date: 20120608
  Serious: Yes (Other)
  Sender: FDA-Public Use
  Company Number: CH-ROCHE-1032269

PATIENT
  Age: 14 Month
  Sex: Male

DRUGS (5)
  1. VALCYTE [Suspect]
     Indication: PRODUCT USED FOR UNKNOWN INDICATION
     Route: 048
     Dates: start: 20110801, end: 20111219
  2. PROGRAF [Suspect]
     Indication: IMMUNOSUPPRESSION
     Route: 048
     Dates: start: 20110801
  3. URSO FALK [Concomitant]
  4. BACTRIM [Suspect]
     Indication: PRODUCT USED FOR UNKNOWN INDICATION
     Route: 048
     Dates: start: 20110801, end: 20111118
  5. ORANOL [Concomitant]

REACTIONS (2)
  - LACTIC ACIDOSIS [None]
  - PANCYTOPENIA [None]
